FAERS Safety Report 4536732-4 (Version None)
Quarter: 2004Q4

REPORT INFORMATION
  Report Type: 
  Country: None (occurrence: None)
  Receive Date: 20041223
  Receipt Date: 20041213
  Transmission Date: 20050328
  Serious: Yes (Death)
  Sender: FDA-Public Use
  Company Number: US-JNJFOC-20040906352

PATIENT
  Sex: Male
  Weight: 130.64 kg

DRUGS (27)
  1. RISPERDAL [Suspect]
     Route: 065
  2. RISPERDAL [Suspect]
     Dosage: 4 MG AM AND 2 MG PM
     Route: 065
  3. RISPERDAL [Suspect]
     Route: 065
  4. RISPERDAL [Suspect]
     Indication: BIPOLAR DISORDER
     Route: 065
  5. ZYPREXA [Concomitant]
  6. DEPAKOTE [Concomitant]
     Dosage: 500 MG IN AM AND 1000 MG AT BEDTIME
  7. DEPAKOTE [Concomitant]
  8. DEPAKOTE [Concomitant]
  9. DEPAKOTE [Concomitant]
  10. LITHIUM [Concomitant]
  11. LITHIUM [Concomitant]
     Dosage: IV
  12. LITHIUM [Concomitant]
  13. TRAZODONE HCL [Concomitant]
  14. TEGRETOL [Concomitant]
  15. PRILOSEC [Concomitant]
  16. NYSTATEN [Concomitant]
  17. PROZAC [Concomitant]
  18. PROZAC [Concomitant]
  19. KLONAPIN [Concomitant]
  20. KLONAPIN [Concomitant]
  21. XENICAL [Concomitant]
     Dosage: 3 MONTHS
  22. XENICAL [Concomitant]
     Dosage: 2 WEEKS
  23. WELLBUTRIN SR [Concomitant]
  24. WELLBUTRIN SR [Concomitant]
     Dosage: 2 WEEKS
  25. AMBIEN [Concomitant]
  26. TRILEPTAL [Concomitant]
  27. TRILEPTAL [Concomitant]
     Dosage: 2 WEEKS

REACTIONS (7)
  - AGGRESSION [None]
  - BLOOD PROLACTIN INCREASED [None]
  - DEATH [None]
  - DEPRESSION [None]
  - DRUG INEFFECTIVE [None]
  - INSOMNIA [None]
  - THERAPEUTIC AGENT TOXICITY [None]
